FAERS Safety Report 9516099 (Version 1)
Quarter: 2013Q3

REPORT INFORMATION
  Report Type: Spontaneous
  Country: TR (occurrence: TR)
  Receive Date: 20130911
  Receipt Date: 20130911
  Transmission Date: 20140515
  Serious: Yes (Hospitalization)
  Sender: FDA-Public Use
  Company Number: TR-VERTEX PHARMACEUTICALS INC-2013-009436

PATIENT
  Age: 68 Year
  Sex: Female

DRUGS (3)
  1. INCIVO [Suspect]
     Indication: CHRONIC HEPATITIS C
     Dosage: 750 MG, TID
     Route: 048
     Dates: start: 201306, end: 20130827
  2. PEGASYS [Suspect]
     Indication: CHRONIC HEPATITIS C
     Dosage: 135 ?G, QW
     Route: 058
     Dates: start: 201306, end: 20130827
  3. RIBAVIRIN [Suspect]
     Indication: CHRONIC HEPATITIS C
     Dosage: 1200 MG, QD
     Route: 048
     Dates: start: 201306, end: 20130827

REACTIONS (2)
  - Organising pneumonia [Not Recovered/Not Resolved]
  - Gastritis [Not Recovered/Not Resolved]
